FAERS Safety Report 4316114-0 (Version None)
Quarter: 2004Q1

REPORT INFORMATION
  Report Type: 
  Country: None (occurrence: None)
  Receive Date: 20040310
  Receipt Date: 20020123
  Transmission Date: 20041129
  Serious: Yes (Hospitalization)
  Sender: FDA-Public Use
  Company Number: 30018711-NA01-1

PATIENT
  Age: 47 Year
  Sex: Male
  Weight: 85.8 kg

DRUGS (7)
  1. EXTRANEAL [Suspect]
     Dosage: 7.5% ICODEXTRIN 2.5L; QD
     Dates: start: 20011210, end: 20020131
  2. B-COMBIN SAD [Concomitant]
  3. FOLIC ACID DAK [Concomitant]
  4. APOVIT C-VITAMIN [Concomitant]
  5. ETALPHA (ALFACALCIDOL) [Concomitant]
  6. CENTYL (BEDROFLUMETHIAZIDE) [Concomitant]
  7. ATACAND [Concomitant]

REACTIONS (1)
  - PERITONITIS [None]
